FAERS Safety Report 7378069-4 (Version None)
Quarter: 2011Q1

REPORT INFORMATION
  Report Type: 
  Country: None (occurrence: None)
  Receive Date: 20110328
  Receipt Date: 20110321
  Transmission Date: 20110831
  Serious: No
  Sender: FDA-Public Use
  Company Number: US-PFIZER INC-2011063238

PATIENT
  Sex: Male

DRUGS (11)
  1. ACETYLSALICYLIC ACID [Concomitant]
     Dosage: UNK
  2. AZITHROMYCIN [Interacting]
     Dosage: 2 TABLETS
     Dates: start: 20110301, end: 20110301
  3. SOTALOL [Concomitant]
     Dosage: UNK
  4. WARFARIN SODIUM [Interacting]
     Indication: ATRIAL FIBRILLATION
     Dosage: UNK MG, 1X/DAY
     Dates: start: 20060101, end: 20110307
  5. WARFARIN SODIUM [Interacting]
     Dosage: 7.5 MG, 1X/DAY
     Route: 048
     Dates: start: 20110308
  6. NIASPAN [Concomitant]
     Dosage: UNK
  7. ALLEGRA [Concomitant]
     Dosage: UNK
  8. DILTIAZEM [Concomitant]
     Dosage: UNK
  9. AZITHROMYCIN [Suspect]
     Indication: UPPER RESPIRATORY TRACT INFECTION
     Dosage: 1 TABLET
     Route: 048
     Dates: start: 20110302, end: 20110305
  10. AVAPRO [Concomitant]
     Dosage: UNK
  11. LASIX [Concomitant]
     Dosage: UNK

REACTIONS (2)
  - INTERNATIONAL NORMALISED RATIO INCREASED [None]
  - DRUG INTERACTION [None]
